FAERS Safety Report 9192475 (Version 1)
Quarter: 2013Q1

REPORT INFORMATION
  Report Type: Spontaneous
  Country: US (occurrence: None)
  Receive Date: 20130326
  Receipt Date: 20130326
  Transmission Date: 20140127
  Serious: No
  Sender: FDA-Public Use
  Company Number: None

PATIENT
  Sex: Male
  Weight: 62.8 kg

DRUGS (10)
  1. CABOZANTINIB S-MALATE [Suspect]
     Dates: end: 20130315
  2. AMLODIPINE [Concomitant]
  3. AMONIUM LACTATE LOTION [Concomitant]
  4. CALCIUM CABONATE [Concomitant]
  5. COLBESTASOL CREAM [Concomitant]
  6. LEVOTHYROXINE [Concomitant]
  7. METOPROLOL [Concomitant]
  8. PANTAPRAZOLE [Concomitant]
  9. PETROLEUM HYDRPHILLIC TOPICAL OINTMENT [Concomitant]
  10. SODIUM CHLORIDE TABLETS [Concomitant]

REACTIONS (1)
  - Blood magnesium decreased [None]
